FAERS Safety Report 7401506-3 (Version None)
Quarter: 2011Q2

REPORT INFORMATION
  Report Type: 
  Country: None (occurrence: None)
  Receive Date: 20110408
  Receipt Date: 20110331
  Transmission Date: 20111010
  Serious: Yes (Hospitalization)
  Sender: FDA-Public Use
  Company Number: US-BIOGENIDEC-2009BI041060

PATIENT
  Age: 54 Year
  Sex: Male
  Weight: 71 kg

DRUGS (17)
  1. DIOVAN [Concomitant]
     Indication: HYPERTENSION
  2. TEMAZEPAM [Concomitant]
     Indication: SLEEP DISORDER
  3. TRAZODONE HCL [Concomitant]
     Indication: SLEEP DISORDER
  4. METOPROLOL TARTRATE [Concomitant]
     Indication: HYPERTENSION
  5. LEVOTHYROXINE [Concomitant]
     Indication: HYPOTHYROIDISM
     Dates: start: 19800101
  6. BACLOFEN [Concomitant]
     Indication: MUSCLE SPASMS
     Dates: start: 20090801
  7. BUPROPION HYDROCHLORIDE [Concomitant]
     Indication: DEPRESSION
     Dates: start: 20090701
  8. FRAGMIN [Concomitant]
     Indication: COAGULOPATHY
     Dosage: DOSE UNIT:17250
     Route: 058
     Dates: start: 20080301
  9. VALIUM [Concomitant]
     Indication: ANXIETY
     Dates: start: 20080101
  10. VALIUM [Concomitant]
     Indication: SLEEP DISORDER
     Dates: start: 20080101
  11. VICODIN [Concomitant]
     Indication: NEPHROLITHIASIS
     Dates: start: 20000101
  12. TYSABRI [Suspect]
     Indication: MULTIPLE SCLEROSIS
     Route: 042
     Dates: start: 20091002
  13. KLONOPIN [Concomitant]
     Indication: ANXIETY
  14. ASPIRIN [Concomitant]
     Indication: PRODUCT USED FOR UNKNOWN INDICATION
  15. ATORVASTATIN CALCIUM [Concomitant]
     Indication: HYPERCHOLESTEROLAEMIA
     Dates: start: 20020101
  16. FENTANYL-100 [Concomitant]
     Indication: BREAKTHROUGH PAIN
  17. FENTANYL-100 [Concomitant]
     Indication: BACK PAIN

REACTIONS (7)
  - HYPERCOAGULATION [None]
  - ORAL FUNGAL INFECTION [None]
  - CORONARY ARTERY DISEASE [None]
  - BRADYCARDIA [None]
  - BURNING SENSATION [None]
  - RENAL FAILURE [None]
  - MUSCLE SPASMS [None]
